FAERS Safety Report 5602633-3 (Version None)
Quarter: 2008Q1

REPORT INFORMATION
  Report Type: 
  Country: None (occurrence: None)
  Receive Date: 20080125
  Receipt Date: 20080115
  Transmission Date: 20080703
  Serious: Yes (Life-Threatening, Hospitalization, Other)
  Sender: FDA-Public Use
  Company Number: FR-ROCHE-535487

PATIENT
  Age: 18 Year
  Sex: Male

DRUGS (1)
  1. ISOTRETINOIN (NON-ROCHE/NON-COMPARATOR) [Suspect]
     Indication: ACNE
     Dosage: DRUG NAME: PROCUTA
     Route: 065

REACTIONS (2)
  - DEPRESSION [None]
  - SUICIDE ATTEMPT [None]
